FAERS Safety Report 18019471 (Version 3)
Quarter: 2020Q4

REPORT INFORMATION
  Report Type: Spontaneous
  Country: TR (occurrence: TR)
  Receive Date: 20200714
  Receipt Date: 20201106
  Transmission Date: 20210113
  Serious: Yes (Other)
  Sender: FDA-Public Use
  Company Number: TR-ABBVIE-20K-161-3476765-00

PATIENT
  Age: 69 Year
  Sex: Male

DRUGS (3)
  1. KALETRA [Suspect]
     Active Substance: LOPINAVIR\RITONAVIR
     Indication: ACQUIRED IMMUNODEFICIENCY SYNDROME
     Route: 048
  2. TRUVADA [Concomitant]
     Active Substance: EMTRICITABINE\TENOFOVIR DISOPROXIL FUMARATE
     Indication: ACQUIRED IMMUNODEFICIENCY SYNDROME
     Route: 048
  3. ELVITEGRAVIR/COBICISTAT [Concomitant]
     Indication: ACQUIRED IMMUNODEFICIENCY SYNDROME

REACTIONS (1)
  - Pancreatitis [Recovered/Resolved]
